FAERS Safety Report 7670109-8 (Version None)
Quarter: 2011Q3

REPORT INFORMATION
  Report Type: 
  Country: None (occurrence: None)
  Receive Date: 20110808
  Receipt Date: 20110729
  Transmission Date: 20111222
  Serious: Yes (Hospitalization, Other)
  Sender: FDA-Public Use
  Company Number: PHEH2005US13440

PATIENT
  Sex: Female
  Weight: 72.562 kg

DRUGS (26)
  1. AREDIA [Suspect]
     Dates: start: 20020101, end: 20040101
  2. AMBIEN [Concomitant]
     Dosage: 10 MG, QHS
     Route: 048
  3. HYDROCORTISONE [Concomitant]
  4. ADRIAMYCIN PFS [Concomitant]
  5. GRANISETRON [Concomitant]
  6. PROMETHAZINE [Concomitant]
     Indication: NAUSEA
  7. KYTRIL [Concomitant]
  8. METHOTREXATE [Concomitant]
  9. LEUCOVORIN CALCIUM [Concomitant]
  10. FLUOROURACIL [Concomitant]
  11. CLINDAMYCIN [Concomitant]
  12. ZOFRAN [Concomitant]
  13. ZOMETA [Suspect]
     Dates: start: 20040101
  14. TAXOTERE [Concomitant]
  15. HERCEPTIN [Concomitant]
  16. CARBOPLATIN [Suspect]
  17. ARANESP [Concomitant]
  18. FEMARA [Concomitant]
     Dosage: 2.5 MG, QD
     Route: 048
  19. HYDROCHLOROTHIAZIDE [Concomitant]
     Dosage: 25 MG, QD
     Route: 048
  20. LEVAQUIN [Concomitant]
     Dosage: 500 MG, QD
     Route: 048
  21. CIMETIDINE [Concomitant]
  22. COUMADIN [Suspect]
     Dosage: 5 MG, AS DIRECTED
     Route: 048
  23. HEXADROL [Concomitant]
  24. NEULASTA [Concomitant]
  25. NICOTINE [Suspect]
  26. PACLITAXEL [Concomitant]

REACTIONS (77)
  - HEPATIC NEOPLASM MALIGNANT [None]
  - LEFT VENTRICULAR DYSFUNCTION [None]
  - OSTEOMYELITIS [None]
  - ANAEMIA OF MALIGNANT DISEASE [None]
  - PRIMARY SEQUESTRUM [None]
  - ORAL CAVITY FISTULA [None]
  - CARDIOMEGALY [None]
  - THROMBOCYTOPENIA [None]
  - SINUSITIS [None]
  - BLOOD CREATININE INCREASED [None]
  - DIVERTICULUM INTESTINAL [None]
  - SUPERIOR VENA CAVA SYNDROME [None]
  - SEASONAL ALLERGY [None]
  - OSTEONECROSIS OF JAW [None]
  - CLAUSTROPHOBIA [None]
  - AXILLARY MASS [None]
  - LYMPHATIC SYSTEM NEOPLASM [None]
  - OSTEORADIONECROSIS [None]
  - PATHOLOGICAL FRACTURE [None]
  - INCREASED TENDENCY TO BRUISE [None]
  - RECTAL CANCER [None]
  - INTERVERTEBRAL DISC PROTRUSION [None]
  - METASTASES TO LUNG [None]
  - ABSCESS [None]
  - MITRAL VALVE INCOMPETENCE [None]
  - EPISTAXIS [None]
  - LYMPHOEDEMA [None]
  - NEOPLASM PROGRESSION [None]
  - GASTROOESOPHAGEAL REFLUX DISEASE [None]
  - FISTULA DISCHARGE [None]
  - COLLATERAL CIRCULATION [None]
  - TACHYCARDIA [None]
  - POST-TRAUMATIC OSTEOPOROSIS [None]
  - CELLULITIS [None]
  - SINUS TACHYCARDIA [None]
  - CATARACT [None]
  - BLOOD GLUCOSE INCREASED [None]
  - THROMBOSIS [None]
  - NEOPLASM MALIGNANT [None]
  - NEUTROPENIA [None]
  - ANAEMIA [None]
  - TOBACCO ABUSE [None]
  - BRONCHITIS [None]
  - BONE LESION [None]
  - ESSENTIAL HYPERTENSION [None]
  - HIATUS HERNIA [None]
  - INSOMNIA [None]
  - ASTHMA [None]
  - ANXIETY [None]
  - PERICARDIAL EFFUSION [None]
  - TOXICITY TO VARIOUS AGENTS [None]
  - COAGULOPATHY [None]
  - GINGIVAL BLEEDING [None]
  - DENTAL CARIES [None]
  - SPINAL OSTEOARTHRITIS [None]
  - PROTHROMBIN TIME PROLONGED [None]
  - LIGAMENT INJURY [None]
  - HEPATIC STEATOSIS [None]
  - GALLBLADDER DISORDER [None]
  - FACET JOINT SYNDROME [None]
  - GENERAL PHYSICAL HEALTH DETERIORATION [None]
  - OEDEMA PERIPHERAL [None]
  - MOUTH HAEMORRHAGE [None]
  - PULMONARY EMBOLISM [None]
  - JOINT DISLOCATION [None]
  - WEIGHT INCREASED [None]
  - OTITIS MEDIA [None]
  - PLATELET COUNT INCREASED [None]
  - HOT FLUSH [None]
  - TRICUSPID VALVE INCOMPETENCE [None]
  - AORTIC VALVE INCOMPETENCE [None]
  - PULMONARY HYPERTENSION [None]
  - LYMPHADENOPATHY [None]
  - PAIN [None]
  - DECREASED INTEREST [None]
  - DEVICE OCCLUSION [None]
  - NIGHT SWEATS [None]
